FAERS Safety Report 6743801-7 (Version None)
Quarter: 2010Q2

REPORT INFORMATION
  Report Type: 
  Country: None (occurrence: None)
  Receive Date: 20100527
  Receipt Date: 20100325
  Transmission Date: 20101027
  Serious: No
  Sender: FDA-Public Use
  Company Number: US-KINGPHARMUSA00001-K201000362

PATIENT
  Sex: Male

DRUGS (3)
  1. FLECTOR [Suspect]
     Indication: MUSCULOSKELETAL PAIN
     Dosage: UNK PATCH, UNK
     Route: 061
  2. ADVAIR DISKUS 100/50 [Concomitant]
     Dosage: UNK
  3. NASONEX [Concomitant]
     Dosage: UNK

REACTIONS (1)
  - APPLICATION SITE PAIN [None]
